FAERS Safety Report 12641622 (Version 1)
Quarter: 2016Q3

REPORT INFORMATION
  Report Type: Spontaneous
  Country: GB (occurrence: GB)
  Receive Date: 20160810
  Receipt Date: 20160810
  Transmission Date: 20161109
  Serious: Yes (Hospitalization)
  Sender: FDA-Public Use
  Company Number: GB-SA-2016SA142697

PATIENT
  Sex: Male
  Weight: 82 kg

DRUGS (7)
  1. GLYCERYL TRINITRATE [Concomitant]
     Active Substance: NITROGLYCERIN
     Dates: start: 20160615
  2. PERINDOPRIL ERBUMINE. [Concomitant]
     Active Substance: PERINDOPRIL ERBUMINE
     Dates: start: 20160208
  3. ATORVASTATIN [Concomitant]
     Active Substance: ATORVASTATIN
     Dosage: AT NIGHT
     Dates: start: 20160208
  4. ASPIRIN. [Concomitant]
     Active Substance: ASPIRIN
     Dosage: AS DIRECTED
     Dates: start: 20160531
  5. BISOPROLOL [Concomitant]
     Active Substance: BISOPROLOL
     Dates: start: 20160615
  6. CLOPIDOGREL BISULFATE. [Suspect]
     Active Substance: CLOPIDOGREL BISULFATE
     Route: 065
     Dates: start: 20160720
  7. TICAGRELOR [Concomitant]
     Active Substance: TICAGRELOR
     Dates: start: 20160613

REACTIONS (3)
  - Purpura [Recovering/Resolving]
  - Pyrexia [Unknown]
  - Inflammatory marker increased [Unknown]

NARRATIVE: CASE EVENT DATE: 20160720
